FAERS Safety Report 12389196 (Version 4)
Quarter: 2016Q3

REPORT INFORMATION
  Report Type: Spontaneous
  Country: DK (occurrence: DK)
  Receive Date: 20160520
  Receipt Date: 20160825
  Transmission Date: 20161109
  Serious: Yes (Hospitalization, Other)
  Sender: FDA-Public Use
  Company Number: DK-PFIZER INC-2015093257

PATIENT
  Age: 60 Year
  Sex: Female
  Weight: 66 kg

DRUGS (7)
  1. METHOTREXATE SODIUM. [Suspect]
     Active Substance: METHOTREXATE SODIUM
     Indication: PSORIATIC ARTHROPATHY
     Dosage: 20 MG, WEEKLY
     Route: 058
     Dates: start: 20121026
  2. FOLINSYRE [Concomitant]
     Dosage: 10 MG, 1 TIME EVERY 7 DAYS
  3. ELTROXIN [Concomitant]
     Active Substance: LEVOTHYROXINE
     Indication: MYXOEDEMA
     Dosage: 150 MICROGRAM 1 TIME DAILY 6 DAYS A WEEK AND 100 MICROGRAM THE LAST DAY OF THE WEEK
  4. SIMPONI [Suspect]
     Active Substance: GOLIMUMAB
     Indication: PSORIATIC ARTHROPATHY
     Dosage: 50 MG, MONTHLY
     Route: 058
     Dates: start: 20111104, end: 20150216
  5. PINEX [Concomitant]
     Active Substance: ACETAMINOPHEN
     Dosage: 1 G, IN THE MORNING
  6. OXYNORM [Concomitant]
     Active Substance: OXYCODONE HYDROCHLORIDE
     Dosage: 5 MG, 1X/DAY IN THE MORNING
  7. PREDNISOLON [Concomitant]
     Active Substance: PREDNISOLONE
     Indication: PSORIATIC ARTHROPATHY
     Dosage: UNK
     Route: 048
     Dates: start: 20110819

REACTIONS (2)
  - Haematoma [Unknown]
  - Lung adenocarcinoma [Recovered/Resolved]

NARRATIVE: CASE EVENT DATE: 20141230
